FAERS Safety Report 4824341-9 (Version None)
Quarter: 2005Q4

REPORT INFORMATION
  Report Type: 
  Country: None (occurrence: None)
  Receive Date: 20051109
  Receipt Date: 20051020
  Transmission Date: 20060501
  Serious: Yes (Hospitalization, Other)
  Sender: FDA-Public Use
  Company Number: PHEH2005US11744

PATIENT
  Age: 44 Year
  Sex: Female

DRUGS (4)
  1. IMURAN [Suspect]
     Indication: CHRONIC MYELOID LEUKAEMIA
     Dosage: 100 MG, QD
     Route: 048
     Dates: start: 19950101
  2. GLEEVEC [Suspect]
     Indication: CHRONIC MYELOID LEUKAEMIA
     Dosage: 400 MG, QD
     Route: 048
     Dates: start: 20010401
  3. PREDNISONE [Concomitant]
     Indication: CHRONIC MYELOID LEUKAEMIA
     Dosage: UNK, PRN
  4. LOSARTAN [Concomitant]
     Dosage: 25 MG, QD
     Route: 048

REACTIONS (3)
  - BIOPSY LUNG ABNORMAL [None]
  - LUNG INFECTION [None]
  - PULMONARY FIBROSIS [None]
